FAERS Safety Report 9712545 (Version 1)
Quarter: 2013Q4

REPORT INFORMATION
  Report Type: Spontaneous
  Country: US (occurrence: None)
  Receive Date: 20131125
  Receipt Date: 20131125
  Transmission Date: 20140711
  Serious: No
  Sender: FDA-Public Use
  Company Number: None

PATIENT
  Age: 24 Year
  Sex: Female

DRUGS (2)
  1. MIRENA [Suspect]
     Dosage: INSERTED INTO UTCRUS?20 MICROGRAMS/DAY
     Dates: start: 200809, end: 201112
  2. DIAMOX [Concomitant]

REACTIONS (6)
  - Migraine [None]
  - Vision blurred [None]
  - Nausea [None]
  - Papilloedema [None]
  - Benign intracranial hypertension [None]
  - Loss of consciousness [None]
